FAERS Safety Report 9662859 (Version 1)
Quarter: 2013Q4

REPORT INFORMATION
  Report Type: Spontaneous
  Country: US (occurrence: US)
  Receive Date: 20131031
  Receipt Date: 20131031
  Transmission Date: 20140711
  Serious: No
  Sender: FDA-Public Use
  Company Number: US-PURDUE-USA-2011-0075325

PATIENT
  Sex: 0

DRUGS (1)
  1. OXYCONTIN (NDA 22-272) [Suspect]
     Indication: PRODUCT USED FOR UNKNOWN INDICATION
     Dosage: UNK
     Dates: start: 20110913

REACTIONS (5)
  - Muscle spasms [Unknown]
  - Pain [Unknown]
  - Drug effect decreased [Unknown]
  - Impaired work ability [Unknown]
  - General physical health deterioration [Unknown]
